FAERS Safety Report 5051792-2 (Version None)
Quarter: 2006Q3

REPORT INFORMATION
  Report Type: 
  Country: None (occurrence: None)
  Receive Date: 20060713
  Receipt Date: 20060713
  Transmission Date: 20061208
  Serious: Yes (Other)
  Sender: FDA-Public Use
  Company Number: None

PATIENT
  Age: 51 Year
  Sex: Male
  Weight: 87.8 kg

DRUGS (2)
  1. INTERFERON ALFA-2B [Suspect]
  2. RIBAVIRIN [Suspect]

REACTIONS (1)
  - SUICIDAL IDEATION [None]
